FAERS Safety Report 10498589 (Version 2)
Quarter: 2014Q4

REPORT INFORMATION
  Report Type: Spontaneous
  Country: JP (occurrence: JP)
  Receive Date: 20141006
  Receipt Date: 20141024
  Transmission Date: 20150528
  Serious: Yes (Other)
  Sender: FDA-Public Use
  Company Number: JP-ASTRAZENECA-2014SE74642

PATIENT
  Sex: Male

DRUGS (6)
  1. CELECOXIB. [Suspect]
     Active Substance: CELECOXIB
     Route: 048
  2. QUETIAPINE [Suspect]
     Active Substance: QUETIAPINE
     Route: 048
  3. VEGETAMIN A [Suspect]
     Active Substance: CHLORPROMAZINE HYDROCHLORIDE\PHENOBARBITAL\PROMETHAZINE
     Route: 048
  4. DEPAS [Suspect]
     Active Substance: ETIZOLAM
     Route: 048
  5. ROHYPNOL [Suspect]
     Active Substance: FLUNITRAZEPAM
     Route: 048
  6. EURODIN [Suspect]
     Active Substance: ESTAZOLAM
     Route: 048

REACTIONS (3)
  - Intentional overdose [Unknown]
  - Toxicity to various agents [Unknown]
  - Sedation [Unknown]
